FAERS Safety Report 21256598 (Version 1)
Quarter: 2022Q3

REPORT INFORMATION
  Report Type: Spontaneous
  Country: US (occurrence: US)
  Receive Date: 20220826
  Receipt Date: 20220826
  Transmission Date: 20221027
  Serious: Yes (Other)
  Sender: FDA-Public Use
  Company Number: US-AUROBINDO-AUR-APL-2022-033743

PATIENT
  Age: 56 Year
  Sex: Male

DRUGS (2)
  1. DIPHENHYDRAMINE HYDROCHLORIDE [Suspect]
     Active Substance: DIPHENHYDRAMINE HYDROCHLORIDE
     Indication: Insomnia
     Dosage: 4 25-MG TABLETS NIGHTLY TO SLEEP
     Route: 065
  2. DIPHENHYDRAMINE HYDROCHLORIDE [Suspect]
     Active Substance: DIPHENHYDRAMINE HYDROCHLORIDE
     Dosage: 12 TABLETS 3 TIMES A DAY (900MG DAILY TOTAL)
     Route: 065

REACTIONS (7)
  - Overdose [Recovered/Resolved]
  - Intentional product misuse [Unknown]
  - Poisoning [Recovered/Resolved]
  - Extrapyramidal disorder [Recovered/Resolved]
  - Akathisia [Recovered/Resolved]
  - Psychotic disorder [Recovered/Resolved]
  - Urinary retention [Recovered/Resolved]
